FAERS Safety Report 5277701-9 (Version None)
Quarter: 2007Q1

REPORT INFORMATION
  Report Type: 
  Country: None (occurrence: None)
  Receive Date: 20070321
  Receipt Date: 20070308
  Transmission Date: 20070707
  Serious: Yes (Death, Hospitalization)
  Sender: FDA-Public Use
  Company Number: 200703IM000113

PATIENT
  Age: 63 Year
  Sex: Male

DRUGS (1)
  1. INTERFERON GAMMA-1B [Suspect]

REACTIONS (9)
  - ACUTE RESPIRATORY FAILURE [None]
  - BEDRIDDEN [None]
  - BLOOD AMYLASE INCREASED [None]
  - COMPLICATIONS OF TRANSPLANTED LUNG [None]
  - GRAFT DYSFUNCTION [None]
  - LOWER RESPIRATORY TRACT INFECTION [None]
  - LUNG TRANSPLANT [None]
  - LUNG TRANSPLANT REJECTION [None]
  - PNEUMONIA [None]
